FAERS Safety Report 26142143 (Version 2)
Quarter: 2025Q4

REPORT INFORMATION
  Report Type: Spontaneous
  Country: US (occurrence: US)
  Receive Date: 20251210
  Receipt Date: 20251224
  Transmission Date: 20260117
  Serious: Yes (Life-Threatening, Other)
  Sender: PFIZER
  Company Number: US-MLMSERVICE-20251202-PI735587-00312-1

PATIENT
  Age: 28 Year
  Sex: Male

DRUGS (1)
  1. TESTOSTERONE CYPIONATE [Suspect]
     Active Substance: TESTOSTERONE CYPIONATE
     Indication: Performance enhancing product use

REACTIONS (3)
  - Atrial fibrillation [Recovering/Resolving]
  - Cardiomyopathy [Recovering/Resolving]
  - Polycythaemia [Recovering/Resolving]
